FAERS Safety Report 15073260 (Version 1)
Quarter: 2018Q2

REPORT INFORMATION
  Report Type: Report from Study
  Country: RO (occurrence: RO)
  Receive Date: 20180627
  Receipt Date: 20180627
  Transmission Date: 20180711
  Serious: Yes (Other)
  Sender: FDA-Public Use
  Company Number: RO-ROCHE-2140803

PATIENT
  Age: 70 Year
  Sex: Female
  Weight: 72 kg

DRUGS (1)
  1. HERCEPTIN [Suspect]
     Active Substance: TRASTUZUMAB
     Indication: BREAST CANCER METASTATIC
     Route: 042
     Dates: start: 201710, end: 2018

REACTIONS (5)
  - Swelling [Not Recovered/Not Resolved]
  - Hyperhidrosis [Unknown]
  - Hypoacusis [Not Recovered/Not Resolved]
  - Peripheral swelling [Not Recovered/Not Resolved]
  - Auditory disorder [Not Recovered/Not Resolved]

NARRATIVE: CASE EVENT DATE: 201806
